FAERS Safety Report 12417086 (Version 2)
Quarter: 2016Q3

REPORT INFORMATION
  Report Type: Spontaneous
  Country: RO (occurrence: RO)
  Receive Date: 20160530
  Receipt Date: 20160704
  Transmission Date: 20161109
  Serious: Yes (Other)
  Sender: FDA-Public Use
  Company Number: RO-JNJFOC-20160515831

PATIENT
  Age: 50 Year
  Sex: Female

DRUGS (6)
  1. ROSUVASTATIN. [Interacting]
     Active Substance: ROSUVASTATIN
     Indication: HYPERLIPIDAEMIA
     Route: 065
     Dates: start: 2010
  2. ABACAVIR. [Suspect]
     Active Substance: ABACAVIR
     Indication: HIV INFECTION CDC CATEGORY A
     Route: 065
     Dates: start: 200307
  3. DARUNAVIR [Suspect]
     Active Substance: DARUNAVIR
     Indication: HIV INFECTION CDC CATEGORY A
     Route: 048
     Dates: start: 201007, end: 201312
  4. ROSUVASTATIN. [Interacting]
     Active Substance: ROSUVASTATIN
     Indication: HYPERLIPIDAEMIA
     Route: 065
  5. RITONAVIR. [Suspect]
     Active Substance: RITONAVIR
     Indication: HIV INFECTION CDC CATEGORY A
     Route: 065
     Dates: start: 201007, end: 201312
  6. LAMIVUDINE. [Suspect]
     Active Substance: LAMIVUDINE
     Indication: HIV INFECTION CDC CATEGORY A
     Route: 065
     Dates: start: 201007

REACTIONS (4)
  - Transient ischaemic attack [Recovered/Resolved]
  - Drug interaction [Unknown]
  - Blood pressure systolic increased [Recovered/Resolved]
  - Dyslipidaemia [Recovering/Resolving]

NARRATIVE: CASE EVENT DATE: 201310
